FAERS Safety Report 8394740 (Version 2)
Quarter: 2013Q2

REPORT INFORMATION
  Report Type: Spontaneous
  Country: US (occurrence: US)
  Receive Date: 20120207
  Receipt Date: 20130621
  Transmission Date: 20140414
  Serious: Yes (Hospitalization)
  Sender: FDA-Public Use
  Company Number: US-ROCHE-1035948

PATIENT
  Age: 61 Year
  Sex: Male

DRUGS (10)
  1. TOCILIZUMAB [Suspect]
     Indication: RHEUMATOID ARTHRITIS
     Route: 065
  2. RITUXIMAB [Suspect]
     Indication: RHEUMATOID ARTHRITIS
     Route: 065
     Dates: start: 200702, end: 201102
  3. ENBREL [Suspect]
     Indication: RHEUMATOID ARTHRITIS
     Route: 065
     Dates: start: 200403, end: 200410
  4. REMICADE [Suspect]
     Indication: RHEUMATOID ARTHRITIS
     Route: 065
     Dates: start: 20050526, end: 20061211
  5. SOLU-MEDROL [Suspect]
     Indication: RETINAL VASCULITIS
     Dosage: 2 BOLUS
     Route: 065
     Dates: start: 200412
  6. HUMIRA [Suspect]
     Indication: RHEUMATOID ARTHRITIS
     Route: 058
     Dates: start: 200411, end: 20041201
  7. ARAVA [Suspect]
     Indication: PRODUCT USED FOR UNKNOWN INDICATION
     Route: 065
     Dates: start: 200504, end: 200701
  8. ENDOXAN [Suspect]
     Indication: RETINAL VASCULITIS
     Route: 065
     Dates: start: 200412, end: 20050527
  9. CORTANCYL [Concomitant]
  10. METHOTREXATE SODIUM [Concomitant]
     Route: 065
     Dates: end: 200502

REACTIONS (1)
  - Bladder cancer [Not Recovered/Not Resolved]
